FAERS Safety Report 19940516 (Version 1)
Quarter: 2021Q4

REPORT INFORMATION
  Report Type: Spontaneous
  Country: CN (occurrence: CN)
  Receive Date: 20211011
  Receipt Date: 20211011
  Transmission Date: 20220303
  Serious: Yes (Other)
  Sender: FDA-Public Use
  Company Number: CN-PFIZER INC-202101278563

PATIENT
  Age: 90 Year
  Sex: Male

DRUGS (2)
  1. ATORVASTATIN CALCIUM [Suspect]
     Active Substance: ATORVASTATIN CALCIUM
     Indication: Arterial disorder
     Dosage: 20 MG, 1X/DAY
     Route: 048
     Dates: start: 20210223, end: 20210910
  2. CLOPIDOGREL [Suspect]
     Active Substance: CLOPIDOGREL BISULFATE
     Indication: Antiplatelet therapy
     Dosage: 75 MG, 1X/DAY
     Route: 048
     Dates: start: 20210223, end: 20210926

REACTIONS (19)
  - Biliary tract infection [Unknown]
  - Pneumonia aspiration [Unknown]
  - Nephrolithiasis [Unknown]
  - Temperature intolerance [Unknown]
  - Chills [Unknown]
  - Pyrexia [Recovered/Resolved]
  - Urinary tract infection [Unknown]
  - Bacterial infection [Unknown]
  - Productive cough [Unknown]
  - Rales [Unknown]
  - Hepatic pain [Unknown]
  - Neutrophil count increased [Unknown]
  - Procalcitonin increased [Unknown]
  - C-reactive protein increased [Unknown]
  - Hepatic mass [Unknown]
  - Renal cyst [Unknown]
  - Cholelithiasis [Unknown]
  - Alanine aminotransferase increased [Unknown]
  - Aspartate aminotransferase increased [Unknown]

NARRATIVE: CASE EVENT DATE: 20210901
